FAERS Safety Report 8666401 (Version 2)
Quarter: 2012Q4

REPORT INFORMATION
  Report Type: Report from Study
  Country: DE (occurrence: DE)
  Receive Date: 20120716
  Receipt Date: 20121008
  Transmission Date: 20130627
  Serious: Yes (Hospitalization)
  Sender: FDA-Public Use
  Company Number: DE-ROCHE-1084855

PATIENT
  Age: 63 Year
  Sex: Female
  Weight: 76 kg

DRUGS (6)
  1. XELODA [Suspect]
     Indication: COLON CANCER
     Dosage: last dose prioe to SAE 18/Aug/2011
     Route: 048
     Dates: start: 20110711
  2. OXALIPLATIN [Suspect]
     Indication: COLON CANCER
     Dosage: last dose prioe to SAE 08/Aug/2011
     Route: 042
     Dates: start: 20110711
  3. L-THYROXIN [Concomitant]
     Indication: HYPOTHYROIDISM
     Dosage: daily
     Route: 048
  4. INSULIN [Concomitant]
     Indication: DIABETES MELLITUS
     Dosage: dose: unknown, daily
     Route: 058
  5. ENOXAPARIN [Concomitant]
     Indication: PROPHYLAXIS
     Dosage: daily
     Route: 048
  6. METOPROLOL [Concomitant]
     Indication: HYPERTENSION
     Dosage: daily
     Route: 048

REACTIONS (1)
  - Ileostomy closure [Recovered/Resolved]
